FAERS Safety Report 10234951 (Version 2)
Quarter: 2014Q2

REPORT INFORMATION
  Report Type: Other
  Country: US (occurrence: US)
  Receive Date: 20140613
  Receipt Date: 20140613
  Transmission Date: 20141212
  Serious: Yes (Hospitalization, Other)
  Sender: FDA-Public Use
  Company Number: US-GSKPPD-2014GSK000898

PATIENT
  Age: 58 Year
  Sex: Male
  Weight: 104.42 kg

DRUGS (5)
  1. AVANDIA [Suspect]
     Indication: DIABETES MELLITUS
     Dosage: AVANDIA WAS NOT LISTED AMONG THE PATIENT^S MEDICAL RECORDS
     Route: 048
  2. METOPROLOL TARTRATE [Concomitant]
     Route: 048
  3. LISINOPRIL [Concomitant]
     Route: 048
  4. LASIX [Concomitant]
     Route: 048
  5. CRESTOR [Concomitant]
     Route: 048

REACTIONS (2)
  - Cardiac failure congestive [None]
  - Cardiac arrest [Recovered/Resolved]
